FAERS Safety Report 9697770 (Version 1)
Quarter: 2013Q4

REPORT INFORMATION
  Report Type: Spontaneous
  Country: CH (occurrence: None)
  Receive Date: 20131107
  Receipt Date: 20131107
  Transmission Date: 20140711
  Serious: Yes (Hospitalization)
  Sender: FDA-Public Use
  Company Number: 2013037457

PATIENT
  Age: 72 Year
  Sex: Male

DRUGS (3)
  1. PRIVIGEN (IMMUNE GLOBULIN INTRAVENOUS (HUMAN) 10% LIQUID [Suspect]
     Indication: HYPOGAMMAGLOBULINAEMIA
     Dosage: START DATE OF IVIG:JAN2012, AFTER 1,5 HOURS INFUSION RATE INCREASED TO 280 ML/H UNTIL INFUSION END.
     Route: 042
     Dates: start: 20121219
  2. OMEPRAZOLE (OMEPRAZOLE) [Concomitant]
  3. CHONDROITIN SULFATE SODIUM [Suspect]

REACTIONS (3)
  - Pain in extremity [None]
  - Paraesthesia [None]
  - Muscular weakness [None]
